FAERS Safety Report 11967376 (Version 1)
Quarter: 2016Q1

REPORT INFORMATION
  Report Type: Spontaneous
  Country: IE (occurrence: IE)
  Receive Date: 20160127
  Receipt Date: 20160127
  Transmission Date: 20160526
  Serious: Yes (Hospitalization, Other)
  Sender: FDA-Public Use
  Company Number: IE-SA-2015SA141757

PATIENT
  Age: 69 Year
  Sex: Female

DRUGS (8)
  1. CHOLESTEROL [Concomitant]
     Active Substance: CHOLESTEROL
     Route: 065
  2. STILNOCT [Suspect]
     Active Substance: ZOLPIDEM TARTRATE
     Indication: INSOMNIA
     Dosage: DAILY DOSE: 2-3 TABLET
     Route: 048
     Dates: start: 2008
  3. DALMANE [Suspect]
     Active Substance: FLURAZEPAM HYDROCHLORIDE
     Indication: INSOMNIA
     Route: 048
     Dates: start: 20160115, end: 20160115
  4. LYRICA [Concomitant]
     Active Substance: PREGABALIN
     Indication: NEURALGIA
     Route: 048
     Dates: start: 201501
  5. STILNOCT [Suspect]
     Active Substance: ZOLPIDEM TARTRATE
     Indication: INSOMNIA
     Route: 048
     Dates: start: 20160118
  6. VALIUM [Concomitant]
     Active Substance: DIAZEPAM
     Indication: STRESS
     Dosage: OCCASIONALLY
     Route: 065
  7. STILNOCT [Suspect]
     Active Substance: ZOLPIDEM TARTRATE
     Indication: SLEEP DISORDER
     Route: 048
     Dates: start: 20160118
  8. STILNOCT [Suspect]
     Active Substance: ZOLPIDEM TARTRATE
     Indication: SLEEP DISORDER
     Dosage: DAILY DOSE: 2-3 TABLET
     Route: 048
     Dates: start: 2008

REACTIONS (11)
  - Pain in extremity [Unknown]
  - Dependence [Unknown]
  - Stress [Unknown]
  - Drug interaction [Unknown]
  - Violence-related symptom [Unknown]
  - Nasal dryness [Unknown]
  - Depression [Unknown]
  - Drug ineffective [Unknown]
  - Dry throat [Unknown]
  - Hyperhidrosis [Unknown]
  - Overdose [Unknown]

NARRATIVE: CASE EVENT DATE: 20160115
